FAERS Safety Report 17791890 (Version 2)
Quarter: 2020Q2

REPORT INFORMATION
  Report Type: Spontaneous
  Country: US (occurrence: US)
  Receive Date: 20200515
  Receipt Date: 20200604
  Transmission Date: 20200714
  Serious: No
  Sender: FDA-Public Use
  Company Number: US-PFIZER INC-2019383072

PATIENT
  Age: 49 Year
  Sex: Female
  Weight: 97.52 kg

DRUGS (2)
  1. LYRICA [Suspect]
     Active Substance: PREGABALIN
     Indication: NEUROPATHY PERIPHERAL
     Dosage: LOWEST DOSE
  2. LYRICA [Suspect]
     Active Substance: PREGABALIN
     Dosage: 150 MG, TWICE A DAY (ONE CAPSULE IN THE MORNING AND ONE CAPSULE AT NIGHT )
     Route: 048

REACTIONS (3)
  - Off label use [Unknown]
  - Malaise [Unknown]
  - Product use in unapproved indication [Unknown]
